FAERS Safety Report 12789196 (Version 1)
Quarter: 2016Q3

REPORT INFORMATION
  Report Type: Spontaneous
  Country: GB (occurrence: GB)
  Receive Date: 20160928
  Receipt Date: 20160928
  Transmission Date: 20161109
  Serious: Yes (Hospitalization)
  Sender: FDA-Public Use
  Company Number: GB-TEVA-694375ACC

PATIENT
  Age: 77 Year
  Sex: Male

DRUGS (8)
  1. CARMELLOSE [Concomitant]
  2. ADCAL-D3 [Concomitant]
     Active Substance: CALCIUM CARBONATE\CHOLECALCIFEROL
  3. FUROSEMIDE. [Suspect]
     Active Substance: FUROSEMIDE
     Indication: OEDEMA PERIPHERAL
     Dosage: 20 MILLIGRAM DAILY; EVERY MORNING.
     Route: 048
  4. RAMIPRIL. [Suspect]
     Active Substance: RAMIPRIL
     Indication: HYPERTENSION
     Dosage: 10 MILLIGRAM DAILY; EVERY MORNING.
     Route: 048
  5. AMLODIPINE [Concomitant]
     Active Substance: AMLODIPINE BESYLATE
  6. BISACODYL. [Concomitant]
     Active Substance: BISACODYL
  7. ATORVASTATIN [Suspect]
     Active Substance: ATORVASTATIN
     Indication: HYPERCHOLESTEROLAEMIA
     Dosage: 10 MILLIGRAM DAILY; AT NIGHT.
     Route: 048
     Dates: end: 20160609
  8. ATENOLOL. [Concomitant]
     Active Substance: ATENOLOL

REACTIONS (7)
  - Rhabdomyolysis [Recovered/Resolved]
  - Hyponatraemia [Recovering/Resolving]
  - Acute kidney injury [Recovered/Resolved]
  - Fall [Recovered/Resolved]
  - Dizziness [Recovered/Resolved]
  - Dyspnoea [Unknown]
  - Asthenia [Unknown]

NARRATIVE: CASE EVENT DATE: 20160607
